FAERS Safety Report 4308221-3 (Version None)
Quarter: 2004Q1

REPORT INFORMATION
  Report Type: 
  Country: None (occurrence: None)
  Receive Date: 20040301
  Receipt Date: 20030902
  Transmission Date: 20041129
  Serious: No
  Sender: FDA-Public Use
  Company Number: US-BRISTOL-MYERS SQUIBB COMPANY-12370714

PATIENT
  Age: 68 Year
  Sex: Female
  Weight: 84 kg

DRUGS (4)
  1. GLUCOPHAGE [Suspect]
     Indication: DIABETES MELLITUS
     Dosage: STARTED ON 500MG DAILY THEN 750MG AND 1 MONTH AGO INCR TO 1000MG TWICE A DAY
     Route: 048
     Dates: start: 20030501
  2. LIPITOR [Concomitant]
  3. ZESTORETIC [Concomitant]
  4. SYNTHROID [Concomitant]

REACTIONS (1)
  - RASH PRURITIC [None]
